FAERS Safety Report 13753808 (Version 1)
Quarter: 2017Q3

REPORT INFORMATION
  Report Type: Spontaneous
  Country: US (occurrence: US)
  Receive Date: 20170714
  Receipt Date: 20170714
  Transmission Date: 20171127
  Serious: No
  Sender: FDA-Public Use
  Company Number: US-VERTEX PHARMACEUTICALS-2017-003634

PATIENT
  Sex: Female

DRUGS (1)
  1. ORKAMBI [Suspect]
     Active Substance: IVACAFTOR\LUMACAFTOR
     Indication: CYSTIC FIBROSIS
     Dosage: 200/ 250 MG, BID
     Route: 048
     Dates: start: 20170305

REACTIONS (2)
  - Psychiatric symptom [Unknown]
  - Anxiety [Unknown]

NARRATIVE: CASE EVENT DATE: 2017
